FAERS Safety Report 20431089 (Version 2)
Quarter: 2022Q1

REPORT INFORMATION
  Report Type: Spontaneous
  Country: US (occurrence: US)
  Receive Date: 20220204
  Receipt Date: 20220311
  Transmission Date: 20220423
  Serious: Yes (Other)
  Sender: FDA-Public Use
  Company Number: US-PFIZER INC-202200124737

PATIENT
  Age: 7 Year
  Sex: Female
  Weight: 35 kg

DRUGS (1)
  1. GENOTROPIN [Suspect]
     Active Substance: SOMATROPIN
     Indication: Hormone replacement therapy
     Dosage: 6 MG, ONCE DAILY (EVERY NIGHT BEFORE BEDTIME)

REACTIONS (3)
  - Drug dose omission by device [Not Recovered/Not Resolved]
  - Device breakage [Not Recovered/Not Resolved]
  - Device mechanical issue [Not Recovered/Not Resolved]

NARRATIVE: CASE EVENT DATE: 20211201
